FAERS Safety Report 8512936-0 (Version None)
Quarter: 2012Q3

REPORT INFORMATION
  Report Type: 
  Country: None (occurrence: None)
  Receive Date: 20120716
  Receipt Date: 20120711
  Transmission Date: 20120928
  Serious: Yes (Death)
  Sender: FDA-Public Use
  Company Number: US-ELI_LILLY_AND_COMPANY-US201204001816

PATIENT
  Sex: Female
  Weight: 104.76 kg

DRUGS (1)
  1. GEMZAR [Suspect]
     Indication: BILE DUCT CANCER
     Dosage: 2 G, OTHER
     Route: 042
     Dates: start: 20111110, end: 20120127

REACTIONS (1)
  - BILE DUCT CANCER [None]
